FAERS Safety Report 18499081 (Version 1)
Quarter: 2020Q4

REPORT INFORMATION
  Report Type: Spontaneous
  Country: US (occurrence: US)
  Receive Date: 20201113
  Receipt Date: 20201113
  Transmission Date: 20210114
  Serious: No
  Sender: FDA-Public Use
  Company Number: US-009507513-2011USA006312

PATIENT
  Age: 20 Year
  Sex: Female
  Weight: 87.5 kg

DRUGS (1)
  1. NEXPLANON [Suspect]
     Active Substance: ETONOGESTREL
     Indication: MENOMETRORRHAGIA
     Dosage: 1 DOSAGE FORM
     Route: 059
     Dates: start: 201703, end: 201905

REACTIONS (2)
  - Menometrorrhagia [Not Recovered/Not Resolved]
  - Drug ineffective for unapproved indication [Unknown]

NARRATIVE: CASE EVENT DATE: 20191001
